FAERS Safety Report 5591975-6 (Version None)
Quarter: 2008Q1

REPORT INFORMATION
  Report Type: 
  Country: None (occurrence: None)
  Receive Date: 20080115
  Receipt Date: 20080107
  Transmission Date: 20080703
  Serious: Yes (Hospitalization)
  Sender: FDA-Public Use
  Company Number: US-ELI_LILLY_AND_COMPANY-US200801001033

PATIENT
  Age: 75 Year
  Sex: Female

DRUGS (5)
  1. HUMALOG MIX 75/25 [Suspect]
     Dosage: UNK, UNK
     Dates: start: 20070701
  2. CLARITHROMYCIN [Concomitant]
  3. GABAPENTIN [Concomitant]
  4. PLAVIX [Concomitant]
  5. NIFEDIPINE [Concomitant]

REACTIONS (3)
  - BONE PAIN [None]
  - GAIT DISTURBANCE [None]
  - MYALGIA [None]
